FAERS Safety Report 6539203-9 (Version None)
Quarter: 2010Q1

REPORT INFORMATION
  Report Type: 
  Country: None (occurrence: None)
  Receive Date: 20100115
  Receipt Date: 20100107
  Transmission Date: 20100710
  Serious: Yes (Other)
  Sender: FDA-Public Use
  Company Number: US-JNJCH-2010000444

PATIENT
  Sex: Female

DRUGS (1)
  1. TUCKS PRE-MOISTENED PADS [Suspect]
     Indication: HAEMORRHOIDS
     Dosage: TEXT:ONE PAD UNSPECIFIED FREQUENCY
     Route: 054

REACTIONS (2)
  - INCORRECT ROUTE OF DRUG ADMINISTRATION [None]
  - URINARY TRACT INFECTION [None]
